FAERS Safety Report 22088104 (Version 2)
Quarter: 2023Q1

REPORT INFORMATION
  Report Type: Report from Study
  Country: US (occurrence: US)
  Receive Date: 20230313
  Receipt Date: 20230328
  Transmission Date: 20230417
  Serious: No
  Sender: FDA-Public Use
  Company Number: US-BRISTOL-MYERS SQUIBB COMPANY-2023-035351

PATIENT
  Age: 75 Year
  Sex: Female

DRUGS (1)
  1. CAMZYOS [Suspect]
     Active Substance: MAVACAMTEN
     Indication: Hypertrophic cardiomyopathy
     Route: 048

REACTIONS (6)
  - Confusional state [Unknown]
  - Memory impairment [Unknown]
  - Increased appetite [Unknown]
  - Rhinorrhoea [Unknown]
  - Tinnitus [Unknown]
  - Hypertension [Unknown]
